FAERS Safety Report 8782211 (Version 4)
Quarter: 2012Q4

REPORT INFORMATION
  Report Type: 
  Country: IL (occurrence: IL)
  Receive Date: 20120913
  Receipt Date: 20121102
  Transmission Date: 20130627
  Serious: Yes (Other)
  Sender: FDA-Public Use
  Company Number: IL-NOVOPROD-357717

PATIENT
  Age: 53 Year
  Sex: Female

DRUGS (5)
  1. VICTOZA [Suspect]
     Indication: TYPE 2 DIABETES MELLITUS
     Dosage: 1.8 mg, UNK
     Route: 065
     Dates: start: 201202
  2. VICTOZA [Suspect]
     Indication: OBESITY
     Dosage: UNK
     Route: 065
     Dates: start: 201205, end: 20120805
  3. LEVEMIR [Concomitant]
     Indication: TYPE 2 DIABETES MELLITUS
  4. GLUCOPHAGE [Concomitant]
     Dosage: UNK
     Dates: start: 2007
  5. NOVONORM [Concomitant]

REACTIONS (2)
  - Pancreatic carcinoma [Not Recovered/Not Resolved]
  - Renal cyst [Not Recovered/Not Resolved]
